FAERS Safety Report 10514134 (Version 2)
Quarter: 2014Q4

REPORT INFORMATION
  Report Type: Report from Study
  Country: US (occurrence: US)
  Receive Date: 20141013
  Receipt Date: 20141013
  Transmission Date: 20150528
  Serious: No
  Sender: FDA-Public Use
  Company Number: US-ASTRAZENECA-2010SE31996

PATIENT
  Age: 54 Year
  Sex: Female
  Weight: 70.3 kg

DRUGS (10)
  1. NEXIUM [Suspect]
     Active Substance: ESOMEPRAZOLE MAGNESIUM
     Indication: GASTROOESOPHAGEAL REFLUX DISEASE
     Route: 048
  2. MORPHINE(NON-AZ PRODUCT) [Suspect]
     Active Substance: MORPHINE
     Route: 065
  3. BABY ASPIRIN [Concomitant]
     Active Substance: ASPIRIN
  4. FISH OIL [Concomitant]
     Active Substance: FISH OIL
  5. PRILOSEC [Suspect]
     Active Substance: OMEPRAZOLE MAGNESIUM
     Route: 048
  6. CALCIUM 600 PLUS D [Concomitant]
  7. CENTRUM SILVER [Concomitant]
     Active Substance: VITAMINS
  8. ATORVASTATIN [Concomitant]
     Active Substance: ATORVASTATIN
  9. VESICARE [Concomitant]
     Active Substance: SOLIFENACIN SUCCINATE
  10. FIBER THERAPY [Concomitant]
     Active Substance: METHYLCELLULOSE (4000 MPA.S)

REACTIONS (12)
  - Memory impairment [Unknown]
  - Adverse event [Unknown]
  - Off label use [Not Recovered/Not Resolved]
  - Vomiting [Unknown]
  - Nausea [Unknown]
  - Throat irritation [Not Recovered/Not Resolved]
  - Intentional product misuse [Unknown]
  - Drug dose omission [Recovered/Resolved]
  - Gastrooesophageal reflux disease [Not Recovered/Not Resolved]
  - Product taste abnormal [Unknown]
  - Abdominal hernia [Not Recovered/Not Resolved]
  - Drug ineffective [Unknown]

NARRATIVE: CASE EVENT DATE: 1999
